FAERS Safety Report 4659262-8 (Version None)
Quarter: 2005Q2

REPORT INFORMATION
  Report Type: 
  Country: None (occurrence: None)
  Receive Date: 20050511
  Receipt Date: 20050429
  Transmission Date: 20051028
  Serious: Yes (Hospitalization)
  Sender: FDA-Public Use
  Company Number: DE-AMGEN-UK129851

PATIENT
  Sex: Male

DRUGS (1)
  1. AMG 099073 [Suspect]
     Indication: HYPERPARATHYROIDISM SECONDARY
     Route: 048
     Dates: start: 20041213, end: 20050425

REACTIONS (1)
  - BLOOD PARATHYROID HORMONE INCREASED [None]
